FAERS Safety Report 23998016 (Version 1)
Quarter: 2024Q2

REPORT INFORMATION
  Report Type: Spontaneous
  Country: BR (occurrence: BR)
  Receive Date: 20240621
  Receipt Date: 20240621
  Transmission Date: 20240715
  Serious: Yes (Other)
  Sender: FDA-Public Use
  Company Number: BR-BAUSCHBL-2024BNL028569

PATIENT
  Age: 75 Year
  Sex: Female

DRUGS (4)
  1. PREDNISOLONE [Suspect]
     Active Substance: PREDNISOLONE
     Indication: Necrotising scleritis
     Dosage: 1 DROP EVERY 4 HOURS
     Route: 061
  2. PREDNISOLONE [Suspect]
     Active Substance: PREDNISOLONE
     Indication: Scleritis
  3. PREDNISONE [Suspect]
     Active Substance: PREDNISONE
     Indication: Necrotising scleritis
     Dosage: 30 MG (0.5 MG/KG/DAY)
     Route: 065
  4. PREDNISONE [Suspect]
     Active Substance: PREDNISONE
     Indication: Scleritis

REACTIONS (1)
  - Therapy partial responder [Unknown]
